FAERS Safety Report 15709787 (Version 2)
Quarter: 2018Q4

REPORT INFORMATION
  Report Type: Spontaneous
  Country: DE (occurrence: DE)
  Receive Date: 20181211
  Receipt Date: 20181221
  Transmission Date: 20190205
  Serious: Yes (Other)
  Sender: FDA-Public Use
  Company Number: DE-PROVELL PHARMACEUTICALS-2060003

PATIENT
  Age: 43 Year
  Sex: Female

DRUGS (6)
  1. L-THYROXIN [Concomitant]
     Active Substance: LEVOTHYROXINE SODIUM
  2. EUTHYROX [Suspect]
     Active Substance: LEVOTHYROXINE SODIUM
     Indication: HYPOTHYROIDISM
     Dates: start: 1998
  3. NOVALGIN (CAFFEINE\PARACETAMOL\PROPYPHENAZONE) [Concomitant]
     Active Substance: ACETAMINOPHEN\CAFFEINE\PROPYPHENAZONE
  4. ELIQUIS [Concomitant]
     Active Substance: APIXABAN
  5. LEVETIRACETAM. [Concomitant]
     Active Substance: LEVETIRACETAM
  6. EUTHYROX [Suspect]
     Active Substance: LEVOTHYROXINE SODIUM

REACTIONS (4)
  - Cerebrovascular accident [None]
  - Intentional product use issue [None]
  - Pulmonary embolism [None]
  - Epilepsy [None]

NARRATIVE: CASE EVENT DATE: 2014
